FAERS Safety Report 8100467-1 (Version None)
Quarter: 2012Q1

REPORT INFORMATION
  Report Type: 
  Country: None (occurrence: None)
  Receive Date: 20120129
  Receipt Date: 20111101
  Transmission Date: 20120608
  Serious: No
  Sender: FDA-Public Use
  Company Number: US-ABBOTT-11P-163-0870450-00

PATIENT
  Age: 36 Year
  Sex: Female

DRUGS (2)
  1. SINGULAIR [Concomitant]
     Indication: ASTHMA
     Route: 048
  2. HUMIRA [Suspect]
     Indication: PSORIATIC ARTHROPATHY
     Dates: start: 20080101

REACTIONS (1)
  - RASH PRURITIC [None]
